FAERS Safety Report 4972485-3 (Version None)
Quarter: 2006Q2

REPORT INFORMATION
  Report Type: 
  Country: None (occurrence: None)
  Receive Date: 20060413
  Receipt Date: 20060407
  Transmission Date: 20061013
  Serious: Yes (Hospitalization)
  Sender: FDA-Public Use
  Company Number: AU-MERCK-0604AUS00040

PATIENT
  Age: 80 Year
  Sex: Male

DRUGS (7)
  1. FOSAMAX [Suspect]
     Indication: OSTEOPOROSIS
     Route: 048
     Dates: start: 20050701, end: 20051126
  2. FOSAMAX [Suspect]
     Route: 048
     Dates: start: 20060306, end: 20060306
  3. OMEPRAZOLE [Concomitant]
     Indication: GASTROOESOPHAGEAL REFLUX DISEASE
     Route: 065
  4. MONTELUKAST SODIUM [Concomitant]
     Indication: ASTHMA
     Route: 065
  5. ASPIRIN [Concomitant]
     Indication: ANTICOAGULANT THERAPY
     Route: 065
  6. ALBUTEROL SULFATE [Concomitant]
     Indication: ASTHMA
     Route: 065
  7. IPRATROPIUM BROMIDE [Concomitant]
     Indication: ASTHMA
     Route: 065

REACTIONS (2)
  - CHRONIC OBSTRUCTIVE PULMONARY DISEASE [None]
  - DYSPNOEA [None]
